FAERS Safety Report 16557550 (Version 1)
Quarter: 2019Q3

REPORT INFORMATION
  Report Type: Spontaneous
  Country: CN (occurrence: CN)
  Receive Date: 20190711
  Receipt Date: 20190711
  Transmission Date: 20191004
  Serious: Yes (Life-Threatening, Other)
  Sender: FDA-Public Use
  Company Number: PHHY2019CN156296

PATIENT
  Age: 13 Year
  Sex: Female

DRUGS (5)
  1. CICLOSPORIN [Suspect]
     Active Substance: CYCLOSPORINE
     Indication: ALLOGENIC STEM CELL TRANSPLANTATION
     Route: 065
  2. ANTITHYMOCYTE IMMUNOGLOBULIN [Suspect]
     Active Substance: THYMOCYTE IMMUNE GLOBULIN NOS
     Indication: BONE MARROW CONDITIONING REGIMEN
     Dosage: 100 MG, (FROM DAYS -1 TO -4)
     Route: 065
  3. FLUDARABINE [Suspect]
     Active Substance: FLUDARABINE PHOSPHATE
     Indication: BONE MARROW CONDITIONING REGIMEN
     Dosage: 50 MG, (FROM DAYS -5 TO -3)
     Route: 065
  4. CYCLOPHOSPHAMIDE. [Suspect]
     Active Substance: CYCLOPHOSPHAMIDE
     Indication: BONE MARROW CONDITIONING REGIMEN
     Dosage: 1.6 MG, (DAYS -5 TO -2)
     Route: 065
  5. CICLOSPORIN [Suspect]
     Active Substance: CYCLOSPORINE
     Indication: PROPHYLAXIS AGAINST GRAFT VERSUS HOST DISEASE

REACTIONS (10)
  - Chills [Recovering/Resolving]
  - Lymphadenopathy [Recovering/Resolving]
  - Graft versus host disease in skin [Unknown]
  - Pyrexia [Recovering/Resolving]
  - Graft versus host disease in liver [Unknown]
  - Post transplant lymphoproliferative disorder [Recovering/Resolving]
  - Epilepsy [Unknown]
  - Epstein-Barr virus infection [Recovering/Resolving]
  - Graft versus host disease in gastrointestinal tract [Unknown]
  - Product use in unapproved indication [Unknown]
